FAERS Safety Report 4684269-4 (Version None)
Quarter: 2005Q2

REPORT INFORMATION
  Report Type: 
  Country: None (occurrence: None)
  Receive Date: 20050531
  Receipt Date: 20041105
  Transmission Date: 20051028
  Serious: Yes (Other)
  Sender: FDA-Public Use
  Company Number: USA040979185

PATIENT
  Age: 52 Year
  Sex: Male
  Weight: 86 kg

DRUGS (5)
  1. ZYPREXA [Suspect]
     Indication: BIPOLAR DISORDER
     Dosage: 20 MG/1 DAY
     Dates: start: 20031001, end: 20040801
  2. TRILEPTAL [Concomitant]
  3. EFFEXOR [Concomitant]
  4. DEPAKOTE [Concomitant]
  5. XANAX (ALPRAZOLAM DUM) [Concomitant]

REACTIONS (1)
  - DIABETES MELLITUS [None]
